FAERS Safety Report 23726283 (Version 1)
Quarter: 2024Q2

REPORT INFORMATION
  Report Type: Spontaneous
  Country: ZA (occurrence: None)
  Receive Date: 20240410
  Receipt Date: 20240410
  Transmission Date: 20240716
  Serious: Yes (Hospitalization)
  Sender: FDA-Public Use
  Company Number: 2024A082205

PATIENT
  Age: 65 Year
  Sex: Male

DRUGS (6)
  1. BUDESONIDE\FORMOTEROL [Suspect]
     Active Substance: BUDESONIDE\FORMOTEROL
     Indication: Asthma
     Dosage: 320 UG; UNKNOWN 60 DOSE UNKNOWN
     Route: 055
  2. OXYCODONE HYDROCHLORIDE [Concomitant]
     Active Substance: OXYCODONE HYDROCHLORIDE
     Indication: Surgery
     Dosage: 10.0MG UNKNOWN
     Route: 048
  3. SYNALEVE [Concomitant]
     Indication: Pain
     Route: 048
  4. PERINDOPRIL [Concomitant]
     Active Substance: PERINDOPRIL
     Indication: Hypertension
     Dosage: 10.0MG UNKNOWN
     Route: 048
  5. CHLORPROMAZINE [Concomitant]
     Active Substance: CHLORPROMAZINE
     Indication: Depression
     Dosage: 25.0MG UNKNOWN
     Route: 048
  6. IRINOTAS [Concomitant]
     Indication: Neoplasm malignant
     Dosage: 100.0MG UNKNOWN
     Route: 048

REACTIONS (7)
  - Neoplasm malignant [Unknown]
  - Dehydration [Unknown]
  - Platelet count decreased [Unknown]
  - White blood cell count decreased [Unknown]
  - Sepsis [Unknown]
  - Diarrhoea [Unknown]
  - Red blood cell count decreased [Unknown]

NARRATIVE: CASE EVENT DATE: 20230801
